FAERS Safety Report 5106008-5 (Version None)
Quarter: 2006Q3

REPORT INFORMATION
  Report Type: 
  Country: None (occurrence: None)
  Receive Date: 20060915
  Receipt Date: 20060907
  Transmission Date: 20061208
  Serious: Yes (Hospitalization)
  Sender: FDA-Public Use
  Company Number: DE-ABBOTT-06P-062-0343452-00

PATIENT
  Sex: Female
  Weight: 72 kg

DRUGS (1)
  1. REDUCTIL 15MG [Suspect]
     Indication: OBESITY
     Route: 048
     Dates: start: 20060202, end: 20060401

REACTIONS (3)
  - ATRIAL FIBRILLATION [None]
  - CONGESTIVE CARDIOMYOPATHY [None]
  - HYPERTHYROIDISM [None]
